FAERS Safety Report 4305250-0 (Version None)
Quarter: 2004Q1

REPORT INFORMATION
  Report Type: 
  Country: None (occurrence: None)
  Receive Date: 20040226
  Receipt Date: 20031203
  Transmission Date: 20041129
  Serious: Yes (Other)
  Sender: FDA-Public Use
  Company Number: US-BRISTOL-MYERS SQUIBB COMPANY-12450268

PATIENT
  Age: 53 Year
  Sex: Male

DRUGS (1)
  1. DEFINITY [Suspect]
     Indication: CARDIAC TAMPONADE
     Route: 040
     Dates: start: 20031203, end: 20031203

REACTIONS (2)
  - DYSPNOEA [None]
  - LOSS OF CONSCIOUSNESS [None]
